FAERS Safety Report 5710771-X (Version None)
Quarter: 2008Q2

REPORT INFORMATION
  Report Type: 
  Country: None (occurrence: None)
  Receive Date: 20080421
  Receipt Date: 20080418
  Transmission Date: 20081010
  Serious: Yes (Hospitalization, Disabling)
  Sender: FDA-Public Use
  Company Number: AU-BRISTOL-MYERS SQUIBB COMPANY-13983804

PATIENT
  Age: 68 Year
  Sex: Female

DRUGS (4)
  1. ABILIFY [Suspect]
     Indication: PSYCHOMOTOR RETARDATION
     Route: 048
     Dates: start: 20070830, end: 20071024
  2. EFFEXOR [Concomitant]
  3. LOVAN [Concomitant]
     Indication: DEPRESSION
     Route: 048
     Dates: start: 20070830, end: 20071022
  4. LOVAN [Concomitant]
     Indication: ANXIETY
     Route: 048
     Dates: start: 20070830, end: 20071022

REACTIONS (2)
  - MANIA [None]
  - PSYCHOTIC DISORDER [None]
